FAERS Safety Report 21896931 (Version 1)
Quarter: 2023Q1

REPORT INFORMATION
  Report Type: Spontaneous
  Country: US (occurrence: None)
  Receive Date: 20230120
  Receipt Date: 20230120
  Transmission Date: 20230417
  Serious: Yes (Hospitalization)
  Sender: FDA-Public Use
  Company Number: None

PATIENT
  Sex: Female

DRUGS (1)
  1. AZITHROMYCIN [Suspect]
     Active Substance: AZITHROMYCIN
     Indication: Bronchitis
     Dosage: FREQUENCY : AS DIRECTED;?500 MG ON DAY 1, THEN 250 MG DAILY FOR 4 DAYS
     Route: 048
     Dates: start: 202208

REACTIONS (3)
  - Chest pain [None]
  - Dyspnoea [None]
  - Neoplasm malignant [None]
